FAERS Safety Report 4754675-8 (Version None)
Quarter: 2005Q3

REPORT INFORMATION
  Report Type: 
  Country: None (occurrence: None)
  Receive Date: 20050829
  Receipt Date: 20050419
  Transmission Date: 20060218
  Serious: Yes (Hospitalization)
  Sender: FDA-Public Use
  Company Number: US-MERCK-0504USA03753

PATIENT
  Age: 65 Year
  Sex: Male
  Weight: 102 kg

DRUGS (7)
  1. VIOXX [Suspect]
     Indication: OSTEOARTHRITIS
     Route: 048
     Dates: start: 20021030, end: 20040101
  2. ADVAIR DISKUS 100/50 [Concomitant]
     Route: 065
  3. FUROSEMIDE [Concomitant]
     Route: 065
  4. LIPITOR [Concomitant]
     Route: 065
  5. LISINOPRIL [Concomitant]
     Route: 065
  6. TAZTIA XT [Concomitant]
     Route: 065
  7. INSULIN [Concomitant]
     Indication: DIABETES MELLITUS
     Route: 065

REACTIONS (21)
  - ANAEMIA [None]
  - ANGINA PECTORIS [None]
  - CARDIAC FAILURE CONGESTIVE [None]
  - CAROTID ARTERY STENOSIS [None]
  - CEREBROVASCULAR ACCIDENT [None]
  - CHEST PAIN [None]
  - CHOLECYSTITIS CHRONIC [None]
  - CHOLELITHIASIS [None]
  - CHRONIC OBSTRUCTIVE PULMONARY DISEASE [None]
  - CORONARY ARTERY DISEASE [None]
  - GASTROINTESTINAL DISORDER [None]
  - HERNIA [None]
  - HYPERSENSITIVITY [None]
  - ILEUS [None]
  - MYOCARDIAL INFARCTION [None]
  - OSTEOMYELITIS CHRONIC [None]
  - RENAL TUBULAR NECROSIS [None]
  - SEROSITIS [None]
  - SMALL INTESTINAL PERFORATION [None]
  - SYNCOPE [None]
  - WOUND INFECTION STAPHYLOCOCCAL [None]
